FAERS Safety Report 11674551 (Version 4)
Quarter: 2016Q1

REPORT INFORMATION
  Report Type: Spontaneous
  Country: BR (occurrence: BR)
  Receive Date: 20151028
  Receipt Date: 20160324
  Transmission Date: 20160525
  Serious: Yes (Death, Hospitalization, Other)
  Sender: FDA-Public Use
  Company Number: BR-PFIZER INC-2014328042

PATIENT
  Age: 59 Year
  Sex: Female
  Weight: 62 kg

DRUGS (5)
  1. SUTENT [Suspect]
     Active Substance: SUNITINIB MALATE
     Indication: PANCREATIC NEUROENDOCRINE TUMOUR
     Dosage: 37.5 MG, CYCLIC 4 PER 2 CYCLIC
     Route: 048
     Dates: start: 201405, end: 201511
  2. SUTENT [Suspect]
     Active Substance: SUNITINIB MALATE
     Dosage: UNK
  3. SUTENT [Suspect]
     Active Substance: SUNITINIB MALATE
     Dosage: 1 TABLET PER DAY, EVERY DAY, WITHOUT A TIME OFF
     Route: 048
     Dates: start: 201511, end: 201511
  4. METFORMIN [Concomitant]
     Active Substance: METFORMIN HYDROCHLORIDE
     Indication: DIABETES MELLITUS
     Dosage: UNK
  5. INSULIN [Concomitant]
     Active Substance: INSULIN NOS
     Dosage: UNK
     Dates: start: 2013

REACTIONS (10)
  - Stomatitis [Recovered/Resolved]
  - Disease progression [Unknown]
  - Feeling abnormal [Recovered/Resolved]
  - Pancreatitis [Recovered/Resolved]
  - Hepatitis [Not Recovered/Not Resolved]
  - Peripheral swelling [Recovered/Resolved]
  - Asthenia [Not Recovered/Not Resolved]
  - Pancreatic neuroendocrine tumour [Unknown]
  - Death [Fatal]
  - Blood calcium increased [Recovered/Resolved]

NARRATIVE: CASE EVENT DATE: 201511
